FAERS Safety Report 24875999 (Version 3)
Quarter: 2025Q2

REPORT INFORMATION
  Report Type: Report from Study
  Country: US (occurrence: US)
  Receive Date: 20250123
  Receipt Date: 20250409
  Transmission Date: 20250716
  Serious: No
  Sender: SANOFI AVENTIS
  Company Number: US-SA-2025SA016696

PATIENT
  Age: 12 Year
  Sex: Male
  Weight: 40 kg

DRUGS (2)
  1. DUPILUMAB [Suspect]
     Active Substance: DUPILUMAB
     Indication: Alopecia areata
     Dosage: 200 MG, QOW
     Route: 058
     Dates: start: 20230426
  2. DUPILUMAB [Suspect]
     Active Substance: DUPILUMAB
     Indication: Alopecia

REACTIONS (2)
  - Off label use [Unknown]
  - Drug effective for unapproved indication [Unknown]

NARRATIVE: CASE EVENT DATE: 20230426
